FAERS Safety Report 18130187 (Version 1)
Quarter: 2020Q3

REPORT INFORMATION
  Report Type: Spontaneous
  Country: US (occurrence: US)
  Receive Date: 20200810
  Receipt Date: 20200810
  Transmission Date: 20201103
  Serious: Yes (Other)
  Sender: FDA-Public Use
  Company Number: None

PATIENT
  Age: 70 Year
  Sex: Female
  Weight: 65 kg

DRUGS (9)
  1. EPOPROSTENOL NEBULIZER CONTINUOUS [Concomitant]
     Dates: start: 20200724, end: 20200807
  2. PROPOFOL. [Concomitant]
     Active Substance: PROPOFOL
     Dates: start: 20200724, end: 20200726
  3. MIDAZOLAM. [Concomitant]
     Active Substance: MIDAZOLAM
     Dates: start: 20200726, end: 20200807
  4. REMDESIVIR. [Suspect]
     Active Substance: REMDESIVIR
     Indication: COVID-19
     Route: 042
     Dates: start: 20200723, end: 20200727
  5. NOREPINEPHRINE. [Concomitant]
     Active Substance: NOREPINEPHRINE
     Dates: start: 20200724, end: 20200725
  6. HYDROMORPHONE [Concomitant]
     Active Substance: HYDROMORPHONE
     Dates: start: 20200725, end: 20200731
  7. REMDESIVIR. [Suspect]
     Active Substance: REMDESIVIR
     Indication: ACUTE RESPIRATORY DISTRESS SYNDROME
     Route: 042
     Dates: start: 20200723, end: 20200727
  8. FENTANYL DRIP [Concomitant]
     Dates: start: 20200726, end: 20200807
  9. DEXAMETHASONE. [Concomitant]
     Active Substance: DEXAMETHASONE
     Dates: start: 20200723, end: 20200801

REACTIONS (1)
  - Bradycardia [None]

NARRATIVE: CASE EVENT DATE: 20200723
